FAERS Safety Report 4811504-1 (Version None)
Quarter: 2005Q4

REPORT INFORMATION
  Report Type: 
  Country: None (occurrence: None)
  Receive Date: 20051027
  Receipt Date: 20051018
  Transmission Date: 20060501
  Serious: Yes (Hospitalization)
  Sender: FDA-Public Use
  Company Number: DE-ABBOTT-05P-062-0314486-00

PATIENT
  Sex: Female

DRUGS (6)
  1. ERGENYL TABLET [Suspect]
     Indication: BIPOLAR DISORDER
     Route: 048
     Dates: start: 20050419, end: 20050503
  2. FLUPENTIXOL DIHYDROCHLORIDE [Concomitant]
     Indication: MANIA
     Route: 048
     Dates: start: 20050201
  3. PERAZINE [Concomitant]
     Indication: MANIA
     Route: 048
     Dates: start: 20050319
  4. THIAMAZOLE [Concomitant]
     Indication: HYPERTHYROIDISM
     Route: 048
     Dates: start: 20050204
  5. THIAMAZOLE [Concomitant]
     Indication: GOITRE
  6. ANTIHYPERTENSIVES [Concomitant]
     Indication: HYPERTENSION

REACTIONS (3)
  - ANTICONVULSANT DRUG LEVEL DECREASED [None]
  - LEUKOPENIA [None]
  - NEUTROPENIA [None]
